FAERS Safety Report 14367748 (Version 2)
Quarter: 2018Q1

REPORT INFORMATION
  Report Type: Spontaneous
  Country: US (occurrence: US)
  Receive Date: 20180109
  Receipt Date: 20180305
  Transmission Date: 20180509
  Serious: Yes (Hospitalization)
  Sender: FDA-Public Use
  Company Number: US-BAYER-2018-004941

PATIENT
  Age: 61 Year
  Sex: Female

DRUGS (3)
  1. BETASERON [Suspect]
     Active Substance: INTERFERON BETA-1B
     Indication: MULTIPLE SCLEROSIS
     Dosage: 0.3 MG, QOD
     Dates: end: 2017
  2. BETASERON [Suspect]
     Active Substance: INTERFERON BETA-1B
     Indication: MULTIPLE SCLEROSIS
     Dosage: UNK
     Dates: start: 19930101, end: 19950101
  3. BETASERON [Suspect]
     Active Substance: INTERFERON BETA-1B
     Indication: PROGRESSIVE MULTIPLE SCLEROSIS
     Dosage: 4 MIU, QOD
     Route: 058
     Dates: start: 20180112

REACTIONS (5)
  - Multiple sclerosis relapse [Recovered/Resolved]
  - Stress [Recovered/Resolved]
  - Drug ineffective [None]
  - Injection site reaction [None]
  - Vomiting [Recovered/Resolved]

NARRATIVE: CASE EVENT DATE: 20180215
